FAERS Safety Report 5528105-2 (Version None)
Quarter: 2007Q4

REPORT INFORMATION
  Report Type: 
  Country: None (occurrence: None)
  Receive Date: 20071121
  Receipt Date: 20071108
  Transmission Date: 20080405
  Serious: Yes (Hospitalization)
  Sender: FDA-Public Use
  Company Number: S07-FRA-00504-01

PATIENT
  Age: 93 Year
  Sex: Male

DRUGS (7)
  1. CITALOPRAM HYDROBROMIDE [Suspect]
     Indication: SENILE DEMENTIA
     Dates: start: 20061201
  2. ZAMUDOL (TRAMADOL HYDROCHLORIDE) [Suspect]
     Indication: ARTHRALGIA
     Dosage: 1 UNK BID PO
     Route: 048
     Dates: start: 20061128
  3. EQUAMIL (MEPROBAMATE) [Suspect]
     Indication: ANXIETY
     Dosage: 250 MG QD PO
     Route: 048
     Dates: start: 20061223, end: 20070107
  4. ATHYMIL (MIANSERIN HYDROCHLORIDE) [Concomitant]
  5. BISOPROLOL FUMARATE [Concomitant]
  6. OXAZEPAM [Concomitant]
  7. IMOVANE (ZOPICLONE) [Concomitant]

REACTIONS (4)
  - ACTIVATED PARTIAL THROMBOPLASTIN TIME PROLONGED [None]
  - BLOOD ALBUMIN DECREASED [None]
  - LEUKOCYTOCLASTIC VASCULITIS [None]
  - MALNUTRITION [None]
